FAERS Safety Report 6758837-X (Version None)
Quarter: 2010Q2

REPORT INFORMATION
  Report Type: 
  Country: None (occurrence: None)
  Receive Date: 20100607
  Receipt Date: 20100602
  Transmission Date: 20101027
  Serious: Yes (Other)
  Sender: FDA-Public Use
  Company Number: GXKR2010DE02507

PATIENT
  Age: 75 Year
  Sex: Female

DRUGS (16)
  1. TILIDIN HEXAL COMP (NGX) [Suspect]
     Route: 048
  2. TORSEMIDE [Suspect]
     Route: 048
  3. SPIRONOLACTONE [Suspect]
     Route: 048
  4. ATEHEXAL COMP MITE (NGX) [Suspect]
     Route: 048
  5. PANTOPRAZOLE [Suspect]
     Route: 048
  6. FUROSEMIDE (NGX) [Suspect]
     Route: 048
  7. NAFTIDROFURYL SANDOZ (NGX) [Suspect]
     Route: 048
  8. NEDOLON P [Suspect]
     Route: 048
  9. VOLTAREN DISPERS ^GEIGY^ [Suspect]
     Route: 048
  10. FLUNARIZINE [Suspect]
     Route: 048
  11. BUSCOPAN [Suspect]
     Route: 048
  12. SIMVA [Suspect]
     Route: 048
  13. DIAZEPAM [Suspect]
     Route: 048
  14. ASPIRIN [Suspect]
     Route: 048
  15. LISODURA [Suspect]
     Route: 048
  16. VERTIGO-NEOGAMA [Suspect]
     Route: 048

REACTIONS (1)
  - AUTOIMMUNE THROMBOCYTOPENIA [None]
